FAERS Safety Report 10204650 (Version 1)
Quarter: 2014Q2

REPORT INFORMATION
  Report Type: Report from Study
  Country: DE (occurrence: CL)
  Receive Date: 20140529
  Receipt Date: 20140529
  Transmission Date: 20141212
  Serious: Yes (Other)
  Sender: FDA-Public Use
  Company Number: DE-ACTELION-A-US2014-99378

PATIENT
  Age: 45 Year
  Sex: Female

DRUGS (3)
  1. VENTAVIS [Suspect]
     Indication: PRODUCT USED FOR UNKNOWN INDICATION
     Dosage: 40 MCG,
     Route: 055
     Dates: start: 20130712
  2. BOSENTAN [Concomitant]
     Indication: PRODUCT USED FOR UNKNOWN INDICATION
     Dosage: UNK
     Route: 048
  3. VESNIDAN [Concomitant]
     Dosage: UNK

REACTIONS (2)
  - Conjunctival disorder [Recovering/Resolving]
  - Coagulopathy [Unknown]
